FAERS Safety Report 10450265 (Version 1)
Quarter: 2014Q3

REPORT INFORMATION
  Report Type: Spontaneous
  Country: US (occurrence: None)
  Receive Date: 20140910
  Receipt Date: 20140910
  Transmission Date: 20150326
  Serious: No
  Sender: FDA-Public Use
  Company Number: 13110ADE

PATIENT
  Age: 71 Year
  Sex: Female

DRUGS (11)
  1. ALLOPURINOL. [Concomitant]
     Active Substance: ALLOPURINOL
  2. LISINOPRIL. [Concomitant]
     Active Substance: LISINOPRIL
  3. SERTRALINE [Concomitant]
     Active Substance: SERTRALINE HYDROCHLORIDE
  4. VITAMIN D [Concomitant]
     Active Substance: CHOLECALCIFEROL
  5. ASPIRIN. [Concomitant]
     Active Substance: ASPIRIN
  6. JANUMET [Concomitant]
     Active Substance: METFORMIN HYDROCHLORIDE\SITAGLIPTIN PHOSPHATE
  7. SIMVASTATIN. [Concomitant]
     Active Substance: SIMVASTATIN
  8. POTASSIUM CITRATE 10 MEQ (POTASSIUM CITRATE TABLETS) [Suspect]
     Active Substance: POTASSIUM CITRATE
     Indication: NEPHROLITHIASIS
     Dosage: 1 TAB PO QD, ORAL
     Route: 048
     Dates: start: 2011, end: 201305
  9. METOPROLOL SUCCINATE. [Concomitant]
     Active Substance: METOPROLOL SUCCINATE
  10. ARMOUR THYROID [Concomitant]
     Active Substance: THYROID, PORCINE\THYROID, UNSPECIFIED
  11. POTASSIUM CITRATE 10 MEQ (POTASSIUM CITRATE TABLETS) [Suspect]
     Active Substance: POTASSIUM CITRATE
     Route: 048
     Dates: start: 201305

REACTIONS (1)
  - Medication residue present [None]

NARRATIVE: CASE EVENT DATE: 201305
